FAERS Safety Report 5859218-3 (Version None)
Quarter: 2008Q3

REPORT INFORMATION
  Report Type: 
  Country: None (occurrence: None)
  Receive Date: 20080826
  Receipt Date: 20080826
  Transmission Date: 20090109
  Serious: Yes (Other)
  Sender: FDA-Public Use
  Company Number: None

PATIENT
  Age: 25 Year
  Sex: Female
  Weight: 63.5036 kg

DRUGS (1)
  1. ZOLPIDEM [Suspect]

REACTIONS (7)
  - CONFUSIONAL STATE [None]
  - CRYING [None]
  - FALL [None]
  - FEELING ABNORMAL [None]
  - HALLUCINATION, AUDITORY [None]
  - HALLUCINATION, VISUAL [None]
  - PANIC DISORDER [None]
